FAERS Safety Report 16446684 (Version 2)
Quarter: 2021Q4

REPORT INFORMATION
  Report Type: Spontaneous
  Country: JP (occurrence: JP)
  Receive Date: 20190618
  Receipt Date: 20211202
  Transmission Date: 20220304
  Serious: Yes (Hospitalization)
  Sender: FDA-Public Use
  Company Number: PHHY2019JP134603

PATIENT
  Age: 47 Year
  Sex: Male

DRUGS (8)
  1. METHYLPREDNISOLONE [Suspect]
     Active Substance: METHYLPREDNISOLONE
     Indication: Eosinophilic myocarditis
     Dosage: 1000 MG, QD
     Route: 065
  2. METHYLPREDNISOLONE [Suspect]
     Active Substance: METHYLPREDNISOLONE
     Dosage: 125 MG, QD
     Route: 042
  3. AMIODARONE HYDROCHLORIDE [Suspect]
     Active Substance: AMIODARONE HYDROCHLORIDE
     Indication: Eosinophilic myocarditis
     Dosage: UNK
     Route: 042
  4. MILRINONE [Concomitant]
     Active Substance: MILRINONE
     Indication: Eosinophilic myocarditis
     Dosage: 0.125 UG/KG/ MIN
     Route: 042
  5. HEPARIN [Concomitant]
     Active Substance: HEPARIN SODIUM
     Indication: Prophylaxis
     Dosage: 1500 U, QD
     Route: 065
  6. PENTASA [Concomitant]
     Active Substance: MESALAMINE
     Indication: Colitis ulcerative
     Dosage: 3000 MG, QD
     Route: 065
  7. DOPAMINE [Concomitant]
     Active Substance: DOPAMINE HYDROCHLORIDE
     Indication: Blood pressure systolic decreased
     Route: 042
  8. DOBUTAMINE [Concomitant]
     Active Substance: DOBUTAMINE HYDROCHLORIDE
     Indication: Cardiac dysfunction
     Route: 042

REACTIONS (3)
  - Left ventricular dysfunction [Unknown]
  - Hypokinesia [Unknown]
  - Product use in unapproved indication [Unknown]
